FAERS Safety Report 5062225-4 (Version None)
Quarter: 2006Q3

REPORT INFORMATION
  Report Type: 
  Country: None (occurrence: None)
  Receive Date: 20060726
  Receipt Date: 20060724
  Transmission Date: 20061208
  Serious: Yes (Hospitalization)
  Sender: FDA-Public Use
  Company Number: PHBS2006JP10926

PATIENT
  Age: 69 Year
  Sex: Male

DRUGS (5)
  1. MICARDIS [Suspect]
     Route: 048
     Dates: end: 20060709
  2. CONIEL [Suspect]
     Route: 048
     Dates: end: 20060709
  3. ROCORNAL [Suspect]
     Route: 048
     Dates: end: 20060709
  4. BEZATOL - SLOW RELEASE [Suspect]
     Route: 048
     Dates: end: 20060709
  5. STARSIS [Suspect]
     Indication: DIABETES MELLITUS
     Route: 048
     Dates: end: 20060709

REACTIONS (5)
  - ALANINE AMINOTRANSFERASE INCREASED [None]
  - ANOREXIA [None]
  - ASPARTATE AMINOTRANSFERASE INCREASED [None]
  - LIVER DISORDER [None]
  - MALAISE [None]
